FAERS Safety Report 4458142-0 (Version None)
Quarter: 2004Q3

REPORT INFORMATION
  Report Type: 
  Country: None (occurrence: None)
  Receive Date: 20040924
  Receipt Date: 20040916
  Transmission Date: 20050211
  Serious: Yes (Death)
  Sender: FDA-Public Use
  Company Number: BE-GLAXOSMITHKLINE-B0345794A

PATIENT

DRUGS (3)
  1. AUGMENTIN [Suspect]
     Dosage: 2TAB TWICE PER DAY
     Route: 048
     Dates: end: 20040915
  2. AMLOR [Concomitant]
  3. LANOXIN [Concomitant]

REACTIONS (1)
  - CEREBRAL HAEMORRHAGE [None]
